FAERS Safety Report 7265704-4 (Version None)
Quarter: 2011Q1

REPORT INFORMATION
  Report Type: 
  Country: None (occurrence: None)
  Receive Date: 20110131
  Receipt Date: 20110125
  Transmission Date: 20110831
  Serious: Yes (Hospitalization, Other)
  Sender: FDA-Public Use
  Company Number: US-MERCK-0805USA00733

PATIENT
  Age: 59 Year
  Sex: Female
  Weight: 46 kg

DRUGS (3)
  1. FOSAMAX [Suspect]
     Indication: OSTEOPOROSIS
     Route: 048
     Dates: start: 20020601, end: 20070504
  2. LOSARTAN POTASSIUM [Concomitant]
     Indication: BLOOD PRESSURE
     Route: 065
     Dates: start: 20000101
  3. PAXIL [Concomitant]
     Indication: ANXIETY
     Route: 065
     Dates: start: 20010101

REACTIONS (26)
  - ANAEMIA [None]
  - BRONCHIAL HYPERREACTIVITY [None]
  - HYPOKALAEMIA [None]
  - HAEMATOCHEZIA [None]
  - WEIGHT DECREASED [None]
  - PULMONARY MASS [None]
  - ANGIODYSPLASIA [None]
  - LOWER GASTROINTESTINAL HAEMORRHAGE [None]
  - HEADACHE [None]
  - SINUS CONGESTION [None]
  - PAIN IN EXTREMITY [None]
  - LUNG NEOPLASM [None]
  - CHRONIC OBSTRUCTIVE PULMONARY DISEASE [None]
  - ARTERIOVENOUS MALFORMATION [None]
  - INTESTINAL FUNCTIONAL DISORDER [None]
  - OSTEOMYELITIS [None]
  - DIVERTICULUM [None]
  - ORAL CANDIDIASIS [None]
  - OSTEONECROSIS OF JAW [None]
  - STRESS FRACTURE [None]
  - RASH ERYTHEMATOUS [None]
  - ORAL TORUS [None]
  - FATIGUE [None]
  - DECREASED APPETITE [None]
  - EMPHYSEMA [None]
  - CONDITION AGGRAVATED [None]
